FAERS Safety Report 8607937-8 (Version None)
Quarter: 2012Q3

REPORT INFORMATION
  Report Type: 
  Country: None (occurrence: None)
  Receive Date: 20120821
  Receipt Date: 20120808
  Transmission Date: 20120928
  Serious: Yes (Life-Threatening, Hospitalization, Other)
  Sender: FDA-Public Use
  Company Number: TR-MILLENNIUM PHARMACEUTICALS, INC.-2012-03754

PATIENT

DRUGS (12)
  1. VELCADE [Suspect]
     Indication: MULTIPLE MYELOMA
     Dosage: UNK
     Route: 065
     Dates: start: 20111222, end: 20120312
  2. TIOTROPIUM BROMIDE [Concomitant]
     Dosage: UNK
     Dates: start: 20120305
  3. CLARITHROMYCIN [Concomitant]
     Dosage: UNK
     Dates: start: 20120226
  4. MOXIFLOXACIN [Concomitant]
     Dosage: UNK
     Dates: start: 20120305
  5. VELCADE [Suspect]
     Dosage: UNK
     Dates: start: 20120322
  6. TAZOBACTAM [Concomitant]
     Dosage: UNK
     Dates: start: 20120305
  7. DEXAMETHASONE [Concomitant]
     Indication: MULTIPLE MYELOMA
     Dosage: UNK
     Dates: start: 20120206, end: 20120312
  8. ZOMETA [Concomitant]
     Dosage: UNK
     Dates: start: 20110914
  9. CEFTRIAXONE SODIUM [Concomitant]
     Dosage: UNK
     Dates: start: 20120226
  10. FORMOTEROL FUMARATE [Concomitant]
     Dosage: UNK
     Dates: start: 20120305
  11. METHYLPREDNISOLONE [Concomitant]
     Dosage: UNK
     Dates: start: 20120305, end: 20120309
  12. DEXAMETHASONE [Concomitant]
     Dosage: UNK
     Dates: start: 20120322

REACTIONS (2)
  - ASTHMA [None]
  - PNEUMONIA [None]
